FAERS Safety Report 9202529 (Version 1)
Quarter: 2013Q2

REPORT INFORMATION
  Report Type: Spontaneous
  Country: US (occurrence: US)
  Receive Date: 20130401
  Receipt Date: 20130401
  Transmission Date: 20140414
  Serious: Yes (Other)
  Sender: FDA-Public Use
  Company Number: US-PFIZER INC-2013099824

PATIENT
  Age: 67 Year
  Sex: Female
  Weight: 65.76 kg

DRUGS (12)
  1. REVATIO [Suspect]
     Indication: PULMONARY HYPERTENSION
     Dosage: 20 MG, 2X/DAY
     Route: 048
     Dates: start: 201301, end: 20130301
  2. XOPENEX [Concomitant]
     Indication: DYSPNOEA
     Dosage: UNK
  3. SINGULAIR [Concomitant]
     Dosage: 10 MG, UNK
  4. ZYRTEC [Concomitant]
     Dosage: 10 MG, UNK
  5. NIFEDIPINE [Concomitant]
     Indication: HYPERTENSION
     Dosage: 90 MG, 1X/DAY
  6. LOSARTAN [Concomitant]
     Dosage: 50 MG, 1X/DAY
  7. HYDROCHLOROTHIAZIDE [Concomitant]
     Dosage: 25 MG, UNK
  8. FLUTICASONE [Concomitant]
     Dosage: 50 UG, UNK
  9. NAPROXEN [Concomitant]
     Dosage: 375 MG, UNK
  10. GABAPENTIN [Concomitant]
     Dosage: 300 MG, 1X/DAY
  11. QVAR [Concomitant]
     Dosage: 80 UG, UNK
  12. ZANAFLEX [Concomitant]
     Dosage: 4 MG, UNK

REACTIONS (11)
  - Loss of consciousness [Recovered/Resolved]
  - Fall [Recovered/Resolved]
  - Dizziness [Recovered/Resolved]
  - Nausea [Recovered/Resolved]
  - Balance disorder [Recovered/Resolved]
  - Influenza like illness [Recovered/Resolved]
  - Malaise [Recovered/Resolved]
  - Abnormal dreams [Recovered/Resolved]
  - Dyspnoea [Unknown]
  - Palpitations [Unknown]
  - Erythema [Unknown]
